FAERS Safety Report 9096356 (Version 1)
Quarter: 2013Q1

REPORT INFORMATION
  Report Type: Spontaneous
  Country: CA (occurrence: CA)
  Receive Date: 20130207
  Receipt Date: 20130207
  Transmission Date: 20140127
  Serious: Yes (Hospitalization)
  Sender: FDA-Public Use
  Company Number: CA-ABBOTT-13P-028-1044841-00

PATIENT
  Age: 40 Year
  Sex: Male

DRUGS (6)
  1. BIAXIN XL [Suspect]
     Indication: SINUSITIS
     Dosage: WAS PRESCRIBED FOR 10 DAYS
     Route: 048
     Dates: start: 20090228, end: 20090307
  2. NASONEX [Concomitant]
     Indication: SINUSITIS
     Dosage: ONE-TWO SPRAYS
     Route: 061
     Dates: start: 20090228
  3. SYNTHROID [Concomitant]
     Indication: PRODUCT USED FOR UNKNOWN INDICATION
     Dosage: AM
     Route: 048
     Dates: start: 1999
  4. MULTIVITAMIN [Concomitant]
     Indication: PRODUCT USED FOR UNKNOWN INDICATION
     Route: 048
  5. TYLENOL [Concomitant]
     Indication: PRODUCT USED FOR UNKNOWN INDICATION
     Dosage: AS REQUIRED
     Route: 048
     Dates: start: 20090228
  6. ADVIL [Concomitant]
     Indication: PRODUCT USED FOR UNKNOWN INDICATION
     Dosage: AS REQUIRED
     Dates: start: 20090228

REACTIONS (7)
  - Palpitations [Recovered/Resolved]
  - Psychotic disorder [Recovered/Resolved with Sequelae]
  - Anxiety [Recovered/Resolved]
  - Panic attack [Recovered/Resolved]
  - Initial insomnia [Recovered/Resolved]
  - Incorrect drug administration duration [Unknown]
  - Middle insomnia [Recovered/Resolved]
